FAERS Safety Report 8184537-8 (Version None)
Quarter: 2012Q1

REPORT INFORMATION
  Report Type: 
  Country: None (occurrence: None)
  Receive Date: 20120305
  Receipt Date: 20120228
  Transmission Date: 20120608
  Serious: Yes (Other)
  Sender: FDA-Public Use
  Company Number: DE-MERCK-1203DEU00002

PATIENT
  Sex: Male

DRUGS (8)
  1. JANUVIA [Suspect]
     Route: 048
     Dates: start: 20110101, end: 20111116
  2. METFORMIN HCL [Suspect]
     Route: 048
     Dates: start: 20090101
  3. PRINIVIL [Concomitant]
     Route: 065
  4. DICLOFENAC RESINATE [Concomitant]
     Route: 065
  5. TAMSULOSIN HYDROCHLORIDE [Concomitant]
     Route: 065
  6. ALLOPURINOL [Concomitant]
     Route: 065
  7. JANUMET [Suspect]
     Route: 048
     Dates: start: 20111212
  8. JANUMET [Suspect]
     Route: 048
     Dates: start: 20110101

REACTIONS (4)
  - GAMMA-GLUTAMYLTRANSFERASE INCREASED [None]
  - LIPASE INCREASED [None]
  - ARTHROPATHY [None]
  - AMYLASE INCREASED [None]
